FAERS Safety Report 5001984-3 (Version None)
Quarter: 2006Q2

REPORT INFORMATION
  Report Type: 
  Country: None (occurrence: None)
  Receive Date: 20060515
  Receipt Date: 20060502
  Transmission Date: 20061013
  Serious: Yes (Hospitalization)
  Sender: FDA-Public Use
  Company Number: US-ROCHE-446679

PATIENT
  Age: 57 Year
  Sex: Female

DRUGS (1)
  1. XELODA [Suspect]
     Indication: ANAL CANCER
     Route: 048

REACTIONS (5)
  - BONE MARROW FAILURE [None]
  - COLITIS [None]
  - ENTEROCOCCAL BACTERAEMIA [None]
  - OESOPHAGITIS [None]
  - STOMATITIS [None]
